FAERS Safety Report 26152667 (Version 1)
Quarter: 2025Q4

REPORT INFORMATION
  Report Type: Spontaneous
  Country: GB (occurrence: GB)
  Receive Date: 20251214
  Receipt Date: 20251214
  Transmission Date: 20260118
  Serious: Yes (Disabling, Other)
  Sender: CIPLA
  Company Number: GB-MHRA-MED-202512021015491020-DQFRY

PATIENT

DRUGS (7)
  1. FINASTERIDE [Suspect]
     Active Substance: FINASTERIDE
     Indication: Prostatomegaly
     Dosage: UNK
     Route: 065
     Dates: start: 2022
  2. CANDESARTAN [Concomitant]
     Active Substance: CANDESARTAN
     Indication: Adverse drug reaction
     Dosage: UNK
     Route: 065
     Dates: start: 2021
  3. CANDESARTAN [Concomitant]
     Active Substance: CANDESARTAN
     Indication: Myocardial infarction
  4. CANDESARTAN [Concomitant]
     Active Substance: CANDESARTAN
     Indication: Stent placement
  5. BISOPROLOL [Concomitant]
     Active Substance: BISOPROLOL
     Indication: Adverse drug reaction
     Dosage: UNK
     Route: 065
     Dates: start: 2021
  6. BISOPROLOL [Concomitant]
     Active Substance: BISOPROLOL
     Indication: Myocardial infarction
  7. BISOPROLOL [Concomitant]
     Active Substance: BISOPROLOL
     Indication: Stent placement

REACTIONS (1)
  - Abnormal weight gain [Not Recovered/Not Resolved]

NARRATIVE: CASE EVENT DATE: 20220101
